FAERS Safety Report 12561346 (Version 2)
Quarter: 2016Q3

REPORT INFORMATION
  Report Type: Spontaneous
  Country: DE (occurrence: DE)
  Receive Date: 20160715
  Receipt Date: 20160823
  Transmission Date: 20161109
  Serious: Yes (Other)
  Sender: FDA-Public Use
  Company Number: DE-PFIZER INC-2016337292

PATIENT
  Sex: Female

DRUGS (1)
  1. SAYANA [Suspect]
     Active Substance: MEDROXYPROGESTERONE
     Indication: CONTRACEPTION
     Dosage: UNK, EVERY 3 MONTHS
     Route: 058

REACTIONS (1)
  - Injection site necrosis [Unknown]
